FAERS Safety Report 4328403-4 (Version None)
Quarter: 2004Q1

REPORT INFORMATION
  Report Type: 
  Country: None (occurrence: None)
  Receive Date: 20040331
  Receipt Date: 20040316
  Transmission Date: 20041129
  Serious: Yes (Hospitalization)
  Sender: FDA-Public Use
  Company Number: DK-BRISTOL-MYERS SQUIBB COMPANY-12534004

PATIENT
  Age: 64 Year
  Sex: Male
  Weight: 100 kg

DRUGS (7)
  1. CISPLATIN [Suspect]
     Indication: BLADDER CANCER
     Dates: start: 20040211, end: 20040211
  2. GEMCITABINE [Suspect]
     Indication: BLADDER CANCER
     Dosage: INITIAL DOSE: 11-FEB-2004
     Dates: start: 20040311, end: 20040311
  3. ESOMEPRAZOLE [Concomitant]
  4. MORPHINE [Concomitant]
  5. LEVOTHYROXIN [Concomitant]
  6. ALLOPURINOL [Concomitant]
  7. METOCLOPRAMIDE [Concomitant]

REACTIONS (8)
  - ABDOMINAL PAIN [None]
  - ASPARTATE AMINOTRANSFERASE INCREASED [None]
  - BLOOD AMYLASE INCREASED [None]
  - HAEMATURIA [None]
  - HYDRONEPHROSIS [None]
  - ILEUS PARALYTIC [None]
  - PANCREATITIS [None]
  - URINARY TRACT INFECTION ENTEROCOCCAL [None]
